FAERS Safety Report 11500117 (Version 1)
Quarter: 2015Q3

REPORT INFORMATION
  Report Type: Report from Study
  Country: US (occurrence: US)
  Receive Date: 20150914
  Receipt Date: 20150914
  Transmission Date: 20151125
  Serious: Yes (Other)
  Sender: FDA-Public Use
  Company Number: US-AMGEN-USASL2015093476

PATIENT
  Age: 62 Year
  Sex: Male

DRUGS (11)
  1. NORTRIPTYLINE [Concomitant]
     Active Substance: NORTRIPTYLINE
  2. OXYMORPHONE [Concomitant]
     Active Substance: OXYMORPHONE
     Dosage: AS NEEDED AFTER SURGERY
  3. ENBREL [Suspect]
     Active Substance: ETANERCEPT
     Indication: RHEUMATOID ARTHRITIS
     Dosage: 50 MG, QWK
     Route: 065
     Dates: start: 20110801
  4. BENADRYL [Concomitant]
     Active Substance: DIPHENHYDRAMINE HYDROCHLORIDE
  5. RAYOS [Concomitant]
     Active Substance: PREDNISONE
  6. VALIUM [Concomitant]
     Active Substance: DIAZEPAM
  7. FOLIC ACID. [Concomitant]
     Active Substance: FOLIC ACID
     Dosage: UNK
  8. METHOTREXATE [Concomitant]
     Active Substance: METHOTREXATE
  9. RISPERDAL [Concomitant]
     Active Substance: RISPERIDONE
  10. SIMVASTATIN. [Concomitant]
     Active Substance: SIMVASTATIN
  11. NORCO [Concomitant]
     Active Substance: ACETAMINOPHEN\HYDROCODONE BITARTRATE
     Dosage: AS NEEDED AFTER SURGERY

REACTIONS (3)
  - Pain [Unknown]
  - Rotator cuff repair [Unknown]
  - Drug effect incomplete [Unknown]

NARRATIVE: CASE EVENT DATE: 2015
